FAERS Safety Report 16692656 (Version 1)
Quarter: 2019Q3

REPORT INFORMATION
  Report Type: Spontaneous
  Country: SE (occurrence: SE)
  Receive Date: 20190812
  Receipt Date: 20190812
  Transmission Date: 20191004
  Serious: Yes (Life-Threatening, Hospitalization, Disabling)
  Sender: FDA-Public Use
  Company Number: SE-TEVA-2019-SE-1090411

PATIENT
  Age: 14 Year
  Sex: Male
  Weight: 55 kg

DRUGS (14)
  1. NOZINAN [Concomitant]
     Active Substance: LEVOMEPROMAZINE
     Dates: start: 20160702, end: 20160702
  2. OLANZAPINE. [Suspect]
     Active Substance: OLANZAPINE
     Dates: start: 20161229, end: 20170102
  3. OLANZAPINE. [Suspect]
     Active Substance: OLANZAPINE
     Dates: start: 20161225, end: 20161228
  4. ABILIFY [Concomitant]
     Active Substance: ARIPIPRAZOLE
     Dates: start: 20161221
  5. STESOLID 5 MG TABLETT [Concomitant]
     Dosage: 1 TABLET, IF NECESSARY, A MAXIMUM OF 2 TABLETS PER DAY. 5 MG
  6. ABILIFY [Concomitant]
     Active Substance: ARIPIPRAZOLE
     Dates: start: 20160620, end: 20161220
  7. ABILIFY [Concomitant]
     Active Substance: ARIPIPRAZOLE
     Dates: start: 2019
  8. NOZINAN [Concomitant]
     Active Substance: LEVOMEPROMAZINE
     Dates: start: 20160620, end: 20160701
  9. OLANZAPINE. [Suspect]
     Active Substance: OLANZAPINE
     Dates: start: 20170103, end: 20170129
  10. OLANZAPINE. [Suspect]
     Active Substance: OLANZAPINE
     Dosage: GET INSERTED EXTRA 2.5 MG OLANZAPINE TO TAKE IF NECESSARY
     Dates: start: 20160703
  11. RISPERIDONE. [Concomitant]
     Active Substance: RISPERIDONE
     Dates: start: 20160628, end: 20160703
  12. OLANZAPINE. [Suspect]
     Active Substance: OLANZAPINE
     Dates: start: 20160702, end: 20161224
  13. MELATONIN [Concomitant]
     Active Substance: MELATONIN
     Dosage: 5 MG
  14. THERALEN [Concomitant]
     Active Substance: TRIMEPRAZINE
     Dosage: 0.25 ML, IF NECESSARY, MAX 1 ML PER DAY

REACTIONS (7)
  - Staring [Recovered/Resolved with Sequelae]
  - Product prescribing error [Recovered/Resolved with Sequelae]
  - Musculoskeletal stiffness [Recovered/Resolved with Sequelae]
  - Mydriasis [Recovered/Resolved with Sequelae]
  - Confusional state [Recovered/Resolved with Sequelae]
  - Weight increased [Recovered/Resolved]
  - Back disorder [Recovered/Resolved with Sequelae]

NARRATIVE: CASE EVENT DATE: 201607
